FAERS Safety Report 20252140 (Version 1)
Quarter: 2021Q4

REPORT INFORMATION
  Report Type: Report from Study
  Country: US (occurrence: US)
  Receive Date: 20211229
  Receipt Date: 20211229
  Transmission Date: 20220303
  Serious: No
  Sender: FDA-Public Use
  Company Number: US-CLOVIS ONCOLOGY-CLO-2021-000205

PATIENT
  Sex: Female

DRUGS (1)
  1. RUBRACA [Suspect]
     Active Substance: RUCAPARIB CAMSYLATE
     Indication: Ovarian cancer
     Dosage: 300 MILLIGRAM, QD
     Route: 048
     Dates: start: 20190722

REACTIONS (6)
  - Gingival bleeding [Recovering/Resolving]
  - Full blood count abnormal [Unknown]
  - Constipation [Recovered/Resolved]
  - White blood cell count decreased [Unknown]
  - Anaemia [Unknown]
  - Product dose omission issue [Unknown]
